FAERS Safety Report 6158792-X (Version None)
Quarter: 2009Q2

REPORT INFORMATION
  Report Type: 
  Country: None (occurrence: None)
  Receive Date: 20090414
  Receipt Date: 20080609
  Transmission Date: 20091009
  Serious: Yes (Hospitalization)
  Sender: FDA-Public Use
  Company Number: 2008-03507

PATIENT
  Age: 76 Year
  Sex: Female

DRUGS (1)
  1. FERRLECIT [Suspect]
     Indication: IRON DEFICIENCY ANAEMIA
     Dosage: 250 MG/250 ML OVER 2 HOURS, INTRAVENOUS
     Route: 042
     Dates: start: 20080606, end: 20080606

REACTIONS (5)
  - ABDOMINAL PAIN [None]
  - DIARRHOEA [None]
  - HYPOTENSION [None]
  - NAUSEA [None]
  - VOMITING [None]
